FAERS Safety Report 18331902 (Version 1)
Quarter: 2020Q3

REPORT INFORMATION
  Report Type: Spontaneous
  Country: US (occurrence: US)
  Receive Date: 20200930
  Receipt Date: 20200930
  Transmission Date: 20201103
  Serious: Yes (Death, Other)
  Sender: FDA-Public Use
  Company Number: US-GILEAD-2020-0496881

PATIENT
  Age: 66 Year
  Sex: Male
  Weight: 80 kg

DRUGS (19)
  1. AZITHROMYCIN ANHYDROUS. [Concomitant]
     Active Substance: AZITHROMYCIN ANHYDROUS
  2. CHOLECALCIFEROL [Concomitant]
     Active Substance: CHOLECALCIFEROL
  3. MEROPENEM. [Concomitant]
     Active Substance: MEROPENEM
  4. ASCORBIC ACID. [Concomitant]
     Active Substance: ASCORBIC ACID
  5. VANCOMYCIN [Concomitant]
     Active Substance: VANCOMYCIN
  6. CEFTRIAXONE. [Concomitant]
     Active Substance: CEFTRIAXONE
  7. PLASMA [Concomitant]
     Active Substance: HUMAN PLASMA
  8. ENOXAPARIN [Concomitant]
     Active Substance: ENOXAPARIN
  9. CEFTAROLINE [Concomitant]
     Active Substance: CEFTAROLINE
  10. FAMOTIDINE. [Concomitant]
     Active Substance: FAMOTIDINE
  11. MICAFUNGIN. [Concomitant]
     Active Substance: MICAFUNGIN SODIUM
  12. INSULIN GLARGINE [Concomitant]
     Active Substance: INSULIN GLARGINE
  13. PANTOPRAZOLE [Concomitant]
     Active Substance: PANTOPRAZOLE
  14. OMEPRAZOLE. [Concomitant]
     Active Substance: OMEPRAZOLE
  15. PIPERACILLIN AND TAZOBACTAM [Concomitant]
     Active Substance: PIPERACILLIN SODIUM\TAZOBACTAM SODIUM
  16. REMDESIVIR. [Suspect]
     Active Substance: REMDESIVIR
     Indication: COVID-19 PNEUMONIA
     Dosage: 100 MG, QD
     Route: 042
     Dates: start: 20200901, end: 20200905
  17. DEXAMETHASONE. [Concomitant]
     Active Substance: DEXAMETHASONE
  18. ZINC SULFATE. [Concomitant]
     Active Substance: ZINC SULFATE
  19. COLCHICINE. [Concomitant]
     Active Substance: COLCHICINE

REACTIONS (1)
  - Cardiac arrest [Fatal]
